FAERS Safety Report 4534909-5 (Version None)
Quarter: 2004Q4

REPORT INFORMATION
  Report Type: 
  Country: None (occurrence: None)
  Receive Date: 20041222
  Receipt Date: 20040726
  Transmission Date: 20050328
  Serious: Yes (Other)
  Sender: FDA-Public Use
  Company Number: US-BRISTOL-MYERS SQUIBB COMPANY-12651832

PATIENT
  Age: 42 Year
  Sex: Male
  Weight: 129 kg

DRUGS (2)
  1. PRAVACHOL [Suspect]
     Indication: BLOOD CHOLESTEROL INCREASED
     Route: 048
     Dates: start: 20001108, end: 20040701
  2. NORVASC [Concomitant]
     Route: 048

REACTIONS (1)
  - NEUROPATHY [None]
